FAERS Safety Report 11184529 (Version 1)
Quarter: 2015Q2

REPORT INFORMATION
  Report Type: Spontaneous
  Country: None (occurrence: None)
  Receive Date: 20150611
  Receipt Date: 20150611
  Transmission Date: 20150821
  Serious: Yes (Life-Threatening, Hospitalization)
  Sender: FDA-Public Use
  Company Number: None

PATIENT
  Age: 34 Year
  Sex: Female
  Weight: 76.7 kg

DRUGS (2)
  1. EPINEPHRINE 1:1000 PF INJ 1MG/ML HOME INTENSIVE CARE PHARMACY [Suspect]
     Active Substance: EPINEPHRINE
     Indication: HYPERSENSITIVITY
     Dosage: 0.3MG ONCE SUBCUTANEOUS
     Route: 058
  2. METHYLPREDNISOLONE. [Suspect]
     Active Substance: METHYLPREDNISOLONE
     Indication: HYPERSENSITIVITY
     Route: 042

REACTIONS (4)
  - Chest pain [None]
  - Blood pressure systolic increased [None]
  - Headache [None]
  - Ventricular tachycardia [None]

NARRATIVE: CASE EVENT DATE: 20150530
